FAERS Safety Report 22295968 (Version 1)
Quarter: 2023Q2

REPORT INFORMATION
  Report Type: Spontaneous
  Country: US (occurrence: US)
  Receive Date: 20230508
  Receipt Date: 20230508
  Transmission Date: 20230722
  Serious: No
  Sender: FDA-Public Use
  Company Number: US-NOVAST LABORATORIES INC.-2022NOV000295

PATIENT

DRUGS (1)
  1. WERA [Suspect]
     Active Substance: ETHINYL ESTRADIOL\NORETHINDRONE
     Indication: Contraception
     Dosage: 0.5 MILLIGRAM AS DIRECTED
     Route: 048
     Dates: start: 20190830

REACTIONS (1)
  - Hair texture abnormal [Not Recovered/Not Resolved]
